FAERS Safety Report 6673397-X (Version None)
Quarter: 2010Q2

REPORT INFORMATION
  Report Type: 
  Country: None (occurrence: None)
  Receive Date: 20100408
  Receipt Date: 20100330
  Transmission Date: 20101027
  Serious: Yes (Other)
  Sender: FDA-Public Use
  Company Number: US-AMGEN-QUU402776

PATIENT
  Sex: Male

DRUGS (8)
  1. SENSIPAR [Suspect]
     Indication: DRUG USE FOR UNKNOWN INDICATION
     Dates: start: 20100327, end: 20100329
  2. CLONIDINE [Concomitant]
  3. CARTIA XT [Concomitant]
  4. DESMOPRESSIN ACETATE [Concomitant]
  5. TESTOSTERONE [Concomitant]
  6. HYDROCORTISONE [Concomitant]
  7. SYNTHROID [Concomitant]
  8. GLYBURIDE [Concomitant]

REACTIONS (5)
  - CALCIUM DEFICIENCY [None]
  - MUSCLE SPASMS [None]
  - NAUSEA [None]
  - PARAESTHESIA [None]
  - TINNITUS [None]
